FAERS Safety Report 8509125-2 (Version None)
Quarter: 2012Q3

REPORT INFORMATION
  Report Type: 
  Country: None (occurrence: None)
  Receive Date: 20120713
  Receipt Date: 20120706
  Transmission Date: 20120928
  Serious: Yes (Hospitalization)
  Sender: FDA-Public Use
  Company Number: US-GLAXOSMITHKLINE-A0978422A

PATIENT
  Age: 17 Year
  Sex: Female
  Weight: 47.6 kg

DRUGS (14)
  1. PEG-ASPARAGINASE [Suspect]
     Indication: T-CELL TYPE ACUTE LEUKAEMIA
     Route: 030
  2. CYCLOPHOSPHAMIDE [Suspect]
     Indication: T-CELL TYPE ACUTE LEUKAEMIA
     Dosage: 1000MGM2 CYCLIC
     Route: 042
  3. CYTARABINE [Suspect]
     Indication: T-CELL TYPE ACUTE LEUKAEMIA
     Dosage: 75MGM2 CYCLIC
     Route: 042
  4. NELARABINE [Suspect]
     Indication: T-CELL TYPE ACUTE LEUKAEMIA
     Dosage: 650MGM2 CYCLIC
     Route: 042
     Dates: start: 20120413
  5. INSULIN ASPART [Concomitant]
  6. NYSTATIN [Concomitant]
  7. VORICONAZOLE [Concomitant]
  8. METHOTREXATE [Suspect]
     Indication: T-CELL TYPE ACUTE LEUKAEMIA
     Route: 037
  9. VANCOMYCIN [Concomitant]
  10. DALTEPARIN SODIUM [Suspect]
     Indication: PRODUCT USED FOR UNKNOWN INDICATION
  11. PIPERACILLIN AND TAZOBACTAM [Concomitant]
  12. VINCRISTINE [Suspect]
     Indication: T-CELL TYPE ACUTE LEUKAEMIA
     Dosage: 1.5MGM2 CYCLIC
     Route: 042
  13. LANSOPRAZOLE [Concomitant]
  14. MERCAPTOPURINE [Suspect]
     Indication: T-CELL TYPE ACUTE LEUKAEMIA
     Dosage: 60MGM2 CYCLIC
     Route: 048

REACTIONS (15)
  - CEREBROVASCULAR ACCIDENT [None]
  - BLOOD BILIRUBIN INCREASED [None]
  - MUSCULAR WEAKNESS [None]
  - DIARRHOEA [None]
  - DYSPHAGIA [None]
  - DEPRESSED LEVEL OF CONSCIOUSNESS [None]
  - EATING DISORDER [None]
  - NEURALGIA [None]
  - SPINAL CORD OEDEMA [None]
  - EPISTAXIS [None]
  - VOCAL CORD PARALYSIS [None]
  - PERIPHERAL MOTOR NEUROPATHY [None]
  - ACUTE RESPIRATORY DISTRESS SYNDROME [None]
  - SINUS TACHYCARDIA [None]
  - CAECITIS [None]
